FAERS Safety Report 14152200 (Version 1)
Quarter: 2017Q4

REPORT INFORMATION
  Report Type: Spontaneous
  Country: US (occurrence: None)
  Receive Date: 20171102
  Receipt Date: 20171102
  Transmission Date: 20180321
  Serious: Yes (Hospitalization)
  Sender: FDA-Public Use
  Company Number: None

PATIENT
  Age: 54 Year
  Sex: Female
  Weight: 59.6 kg

DRUGS (10)
  1. SENNOSIDES. [Concomitant]
     Active Substance: SENNOSIDES
  2. LORAZEPAM. [Concomitant]
     Active Substance: LORAZEPAM
  3. OXYCODONE-ACETAMINOPHEN [Concomitant]
     Active Substance: ACETAMINOPHEN\OXYCODONE HYDROCHLORIDE
  4. PROMETHAZINE [Concomitant]
     Active Substance: PROMETHAZINE\PROMETHAZINE HYDROCHLORIDE
  5. DIPHENOXYLATE-ATROPINE [Concomitant]
  6. APIXABAN [Suspect]
     Active Substance: APIXABAN
     Indication: PULMONARY EMBOLISM
     Route: 048
     Dates: start: 20170630
  7. PROCHLORPERAZINE. [Concomitant]
     Active Substance: PROCHLORPERAZINE
  8. SPIRIVA [Concomitant]
     Active Substance: TIOTROPIUM BROMIDE MONOHYDRATE
  9. ONDANSETRON [Concomitant]
     Active Substance: ONDANSETRON
  10. LOPERAMIDE [Concomitant]
     Active Substance: LOPERAMIDE

REACTIONS (9)
  - Nausea [None]
  - Palpitations [None]
  - Chest pain [None]
  - Anxiety [None]
  - Hypertension [None]
  - Pleural effusion [None]
  - Discomfort [None]
  - Diarrhoea [None]
  - Vomiting [None]

NARRATIVE: CASE EVENT DATE: 20171011
